FAERS Safety Report 9247448 (Version 3)
Quarter: 2013Q3

REPORT INFORMATION
  Report Type: Report from Study
  Country: NL (occurrence: NL)
  Receive Date: 20130423
  Receipt Date: 20130710
  Transmission Date: 20140515
  Serious: Yes (Death, Hospitalization, Other)
  Sender: FDA-Public Use
  Company Number: NL-GENZYME-CLOF-1002592

PATIENT
  Age: 60 Year
  Sex: Male
  Weight: 106 kg

DRUGS (4)
  1. EVOLTRA [Suspect]
     Indication: ACUTE MYELOID LEUKAEMIA
     Dosage: 22 MG, UNK, INDUCTION I PHASE
     Route: 042
     Dates: start: 20130308, end: 20130312
  2. IDARUBICIN [Suspect]
     Indication: ACUTE MYELOID LEUKAEMIA
     Dosage: 27 MG, UNK, INDUCTION I PHASE
     Route: 042
     Dates: start: 20130308
  3. CYTARABINE [Suspect]
     Indication: ACUTE MYELOID LEUKAEMIA
     Dosage: 400 MG, UNK, INDUCTION I PHASE
     Route: 042
     Dates: start: 20130308
  4. CIPROXIN [Concomitant]
     Indication: PROPHYLAXIS
     Dosage: 2X500 MG, UNK
     Route: 048
     Dates: start: 20130308

REACTIONS (6)
  - Ileus paralytic [Unknown]
  - Febrile neutropenia [Fatal]
  - Multi-organ failure [Fatal]
  - Respiratory failure [Fatal]
  - Respiratory syncytial virus infection [Unknown]
  - Aspergillus infection [Unknown]
